FAERS Safety Report 22119818 (Version 1)
Quarter: 2023Q1

REPORT INFORMATION
  Report Type: Spontaneous
  Country: US (occurrence: US)
  Receive Date: 20230321
  Receipt Date: 20230321
  Transmission Date: 20230418
  Serious: No
  Sender: FDA-Public Use
  Company Number: US-JNJFOC-20230313620

PATIENT
  Sex: Male

DRUGS (1)
  1. TYLENOL 8HR [Suspect]
     Active Substance: ACETAMINOPHEN
     Indication: Pain
     Dosage: 2 ONCE A DAY
     Route: 065
     Dates: start: 20230302

REACTIONS (3)
  - Vomiting [Unknown]
  - Expired product administered [Unknown]
  - Product label issue [Unknown]

NARRATIVE: CASE EVENT DATE: 20230301
